FAERS Safety Report 25368154 (Version 3)
Quarter: 2025Q4

REPORT INFORMATION
  Report Type: Spontaneous
  Country: JP (occurrence: JP)
  Receive Date: 20250528
  Receipt Date: 20251121
  Transmission Date: 20260118
  Serious: Yes (Hospitalization)
  Sender: ROCHE
  Company Number: JP-CHUGAI-2025016094

PATIENT
  Age: 8 Decade
  Sex: Female

DRUGS (1)
  1. TECENTRIQ [Suspect]
     Active Substance: ATEZOLIZUMAB
     Indication: Non-small cell lung cancer
     Dosage: UNK
     Route: 042
     Dates: start: 20250501, end: 202505

REACTIONS (2)
  - Rheumatoid arthritis [Recovering/Resolving]
  - Status epilepticus [Recovered/Resolved]

NARRATIVE: CASE EVENT DATE: 20250501
